FAERS Safety Report 6318399-8 (Version None)
Quarter: 2009Q3

REPORT INFORMATION
  Report Type: 
  Country: None (occurrence: None)
  Receive Date: 20090821
  Receipt Date: 20090812
  Transmission Date: 20100115
  Serious: Yes (Hospitalization)
  Sender: FDA-Public Use
  Company Number: CA-ELI_LILLY_AND_COMPANY-CA200908001321

PATIENT
  Sex: Male
  Weight: 80.4 kg

DRUGS (22)
  1. PEMETREXED [Suspect]
     Indication: NON-SMALL CELL LUNG CANCER
     Dosage: 1050 MG, UNK
     Route: 042
     Dates: start: 20090629
  2. PEMETREXED [Suspect]
     Dosage: 1050 MG, UNK
     Route: 042
     Dates: start: 20090720
  3. CISPLATIN [Suspect]
     Indication: NON-SMALL CELL LUNG CANCER
     Dosage: 42 MG, OTHER
     Route: 042
     Dates: start: 20090629, end: 20090703
  4. CISPLATIN [Suspect]
     Dosage: 42 MG, OTHER
     Route: 042
     Dates: start: 20090720
  5. RADIATION [Suspect]
     Indication: NON-SMALL CELL LUNG CANCER
     Dates: start: 20090101
  6. RADIATION [Suspect]
     Dates: start: 20090724
  7. RAMIPRIL                           /00885601/ [Concomitant]
     Indication: HYPERTENSION
     Dosage: 5 MG, DAILY (1/D)
     Route: 048
     Dates: start: 20050101
  8. CRESTOR [Concomitant]
     Indication: HYPERCHOLESTEROLAEMIA
     Dosage: 20 MG, DAILY (1/D)
     Route: 048
     Dates: start: 20080101
  9. METOPROLOL [Concomitant]
     Indication: HYPERTENSION
     Dosage: 50 MG, 2/D
     Dates: start: 20050101
  10. ASPIRIN [Concomitant]
     Indication: PROPHYLAXIS
     Dosage: 325 MG, DAILY (1/D)
     Route: 048
     Dates: start: 20050101
  11. LORAZEPAM [Concomitant]
     Indication: INSOMNIA
     Dosage: 1 MG, AS NEEDED
     Dates: start: 20090101
  12. ADVAIR DISKUS 100/50 [Concomitant]
     Indication: ASTHMA
     Dosage: UNK, AS NEEDED
     Dates: start: 20090101
  13. FOLIC ACID [Concomitant]
     Dosage: 0.4 MG, DAILY (1/D)
     Route: 048
     Dates: start: 20090618
  14. VITAMIN B-12 [Concomitant]
     Dosage: 1000 UG, UNK
     Route: 030
     Dates: start: 20090618
  15. DEXAMETHASONE [Concomitant]
     Dosage: 4 MG, 2/D
     Route: 048
     Dates: start: 20090628, end: 20090630
  16. DEXAMETHASONE [Concomitant]
     Dosage: 4 MG, 2/D
     Route: 048
     Dates: start: 20090719, end: 20090721
  17. KYTRIL [Concomitant]
     Indication: NAUSEA
     Dosage: 2 MG, OTHER
     Route: 048
     Dates: start: 20090704, end: 20090706
  18. KYTRIL [Concomitant]
     Dosage: 2 MG, OTHER
     Route: 048
     Dates: start: 20090720, end: 20090724
  19. RANITIDINE [Concomitant]
     Indication: GASTROOESOPHAGEAL REFLUX DISEASE
     Dosage: 150 MG, 2/D
     Route: 048
     Dates: start: 20090702
  20. CODEINPHOSPHAT [Concomitant]
     Indication: OESOPHAGITIS
     Dosage: UNK, AS NEEDED
     Dates: start: 20090715
  21. SULCRATE [Concomitant]
     Indication: OESOPHAGITIS
     Dosage: UNK, OTHER
     Route: 048
     Dates: start: 20090715
  22. GRAVOL TAB [Concomitant]
     Indication: NAUSEA
     Dosage: UNK, AS NEEDED
     Route: 042
     Dates: start: 20090805, end: 20090805

REACTIONS (3)
  - DEHYDRATION [None]
  - HYPOTENSION [None]
  - NEUTROPENIA [None]
